FAERS Safety Report 11347992 (Version 1)
Quarter: 2015Q3

REPORT INFORMATION
  Report Type: Spontaneous
  Country: US (occurrence: US)
  Receive Date: 20150803
  Receipt Date: 20150803
  Transmission Date: 20151125
  Serious: No
  Sender: FDA-Public Use
  Company Number: US-ELI_LILLY_AND_COMPANY-US201201004849

PATIENT
  Age: 49 Year
  Sex: Male

DRUGS (7)
  1. ZYPREXA [Suspect]
     Active Substance: OLANZAPINE
     Dosage: 100 MG, QD
     Dates: start: 201201
  2. ZYPREXA [Suspect]
     Active Substance: OLANZAPINE
     Indication: PSYCHOTIC DISORDER
     Dosage: 15 MG, UNK
     Dates: end: 201111
  3. ZYPREXA [Suspect]
     Active Substance: OLANZAPINE
     Dosage: 70 MG, QD
     Dates: start: 201112, end: 201112
  4. ZYPREXA [Suspect]
     Active Substance: OLANZAPINE
     Dosage: 30 MG, UNK
     Dates: start: 201111, end: 201111
  5. ZYPREXA [Suspect]
     Active Substance: OLANZAPINE
     Dosage: 60 MG, UNK
     Dates: start: 201112, end: 201112
  6. PRAZOSIN [Concomitant]
     Active Substance: PRAZOSIN
     Indication: HYPOGONADISM
  7. ANDROGEL [Concomitant]
     Active Substance: TESTOSTERONE
     Indication: HYPOGONADISM

REACTIONS (8)
  - Weight increased [Unknown]
  - Hot flush [Recovering/Resolving]
  - Paranoid personality disorder [Unknown]
  - Anxiety [Recovering/Resolving]
  - Poor quality sleep [Recovering/Resolving]
  - Agitation [Recovering/Resolving]
  - Intentional overdose [Unknown]
  - Sleep disorder [Recovered/Resolved]

NARRATIVE: CASE EVENT DATE: 2011
